FAERS Safety Report 15741893 (Version 1)
Quarter: 2018Q4

REPORT INFORMATION
  Report Type: Spontaneous
  Country: US (occurrence: US)
  Receive Date: 20181219
  Receipt Date: 20181219
  Transmission Date: 20190205
  Serious: Yes (Hospitalization, Other)
  Sender: FDA-Public Use
  Company Number: US-009507513-1812USA006791

PATIENT
  Age: 73 Year
  Sex: Female

DRUGS (1)
  1. KEYTRUDA [Suspect]
     Active Substance: PEMBROLIZUMAB
     Indication: NON-SMALL CELL LUNG CANCER STAGE IV
     Dosage: UNK, CYCLICAL

REACTIONS (4)
  - Diabetic ketoacidosis [Recovering/Resolving]
  - Primary adrenal insufficiency [Recovering/Resolving]
  - Hypothyroidism [Recovering/Resolving]
  - Autoimmune endocrine disorder [Recovering/Resolving]
